FAERS Safety Report 23877301 (Version 1)
Quarter: 2024Q2

REPORT INFORMATION
  Report Type: Report from Study
  Country: CL (occurrence: CL)
  Receive Date: 20240521
  Receipt Date: 20240521
  Transmission Date: 20240716
  Serious: Yes (Other)
  Sender: FDA-Public Use
  Company Number: CL-002147023-NVSC2024CL105326

PATIENT
  Age: 28 Year
  Sex: Male

DRUGS (1)
  1. COSENTYX [Suspect]
     Active Substance: SECUKINUMAB
     Indication: Psoriatic arthropathy
     Dosage: 300 MG, QMO
     Route: 058
     Dates: start: 20210211

REACTIONS (5)
  - Pneumonia [Unknown]
  - Blood pressure decreased [Unknown]
  - Influenza [Unknown]
  - Malaise [Unknown]
  - Joint swelling [Unknown]

NARRATIVE: CASE EVENT DATE: 20240501
